FAERS Safety Report 5175611-9 (Version None)
Quarter: 2006Q4

REPORT INFORMATION
  Report Type: 
  Country: None (occurrence: None)
  Receive Date: 20061215
  Receipt Date: 20061206
  Transmission Date: 20070319
  Serious: Yes (Hospitalization)
  Sender: FDA-Public Use
  Company Number: JP-AVENTIS-200613814JP

PATIENT
  Age: 66 Year
  Sex: Male

DRUGS (1)
  1. AMARYL [Suspect]
     Route: 048

REACTIONS (3)
  - DEPRESSED LEVEL OF CONSCIOUSNESS [None]
  - HYPOGLYCAEMIC COMA [None]
  - MEDICATION ERROR [None]
